FAERS Safety Report 6489940-X (Version None)
Quarter: 2009Q4

REPORT INFORMATION
  Report Type: 
  Country: None (occurrence: None)
  Receive Date: 20091211
  Receipt Date: 20091130
  Transmission Date: 20100525
  Serious: Yes (Hospitalization, Other)
  Sender: FDA-Public Use
  Company Number: AT-JNJFOC-20091200729

PATIENT
  Age: 86 Year
  Sex: Female
  Weight: 65 kg

DRUGS (5)
  1. REMICADE [Suspect]
     Dosage: TOTAL OF TWO CYCLES OF INFLIXIMAB INFUSED
     Route: 042
     Dates: end: 20080321
  2. REMICADE [Suspect]
     Indication: CROHN'S DISEASE
     Dosage: TOTAL OF TWO CYCLES OF INFLIXIMAB INFUSED
     Route: 042
     Dates: end: 20080321
  3. DANCOR [Concomitant]
     Indication: CORONARY ARTERY DISEASE
     Route: 048
  4. TRENTAL [Concomitant]
     Route: 048
     Dates: end: 20080415
  5. ATACAND [Concomitant]
     Indication: HYPERTENSION
     Route: 048
     Dates: end: 20080414

REACTIONS (5)
  - ARTHRALGIA [None]
  - CHILLS [None]
  - CONVULSION [None]
  - MENINGIOMA [None]
  - PYREXIA [None]
